FAERS Safety Report 10410692 (Version 1)
Quarter: 2014Q2

REPORT INFORMATION
  Report Type: Spontaneous
  Country: US (occurrence: None)
  Receive Date: 20140530
  Receipt Date: 20140530
  Transmission Date: 20141212
  Serious: No
  Sender: FDA-Public Use
  Company Number: 225440LEO

PATIENT
  Age: 45 Year
  Sex: Female

DRUGS (1)
  1. PICATO [Suspect]
     Indication: ACTINIC KERATOSIS
     Dates: start: 20140217, end: 20140218

REACTIONS (4)
  - Application site vesicles [None]
  - Application site erythema [None]
  - Application site exfoliation [None]
  - Application site exfoliation [None]
